FAERS Safety Report 10559127 (Version 2)
Quarter: 2014Q4

REPORT INFORMATION
  Report Type: Spontaneous
  Country: US (occurrence: US)
  Receive Date: 20141103
  Receipt Date: 20141224
  Transmission Date: 20150529
  Serious: Yes (Other)
  Sender: FDA-Public Use
  Company Number: US-PAR PHARMACEUTICAL, INC-2014SCPR009462

PATIENT

DRUGS (7)
  1. METOPROLOL [Suspect]
     Active Substance: METOPROLOL
     Indication: PRESYNCOPE
     Dosage: 50 MG, OD
     Route: 048
     Dates: start: 2014
  2. ENOXAPARIN [Suspect]
     Active Substance: ENOXAPARIN
     Indication: FACTOR V LEIDEN MUTATION
     Dosage: 60 MG, QD
     Route: 065
     Dates: start: 2013, end: 2014
  3. ENOXAPARIN [Suspect]
     Active Substance: ENOXAPARIN
     Dosage: 60 MG, QD
     Route: 065
     Dates: start: 201406, end: 201407
  4. METOPROLOL [Suspect]
     Active Substance: METOPROLOL
     Indication: HYPERTENSION
     Dosage: 50 MG, OD
     Route: 048
     Dates: end: 2014
  5. PITOCIN [Suspect]
     Active Substance: OXYTOCIN
     Indication: LABOUR INDUCTION
     Dosage: UNK UNK, UNKNOWN
     Route: 065
     Dates: start: 2014, end: 2014
  6. HEPARIN [Suspect]
     Active Substance: HEPARIN SODIUM
     Indication: FACTOR V LEIDEN MUTATION
     Dosage: UNK, UNKNOWN
     Route: 065
     Dates: start: 2014
  7. UNISOM                             /00334102/ [Concomitant]
     Indication: NAUSEA
     Dosage: UNK, UNKNOWN
     Route: 065

REACTIONS (5)
  - Injection site bruising [None]
  - Nausea [None]
  - Gallbladder disorder [Recovered/Resolved]
  - Maternal exposure during delivery [Unknown]
  - Blood pressure increased [Recovered/Resolved]

NARRATIVE: CASE EVENT DATE: 2014
